FAERS Safety Report 9231231 (Version 1)
Quarter: 2013Q2

REPORT INFORMATION
  Report Type: Spontaneous
  Country: IT (occurrence: IT)
  Receive Date: 20130415
  Receipt Date: 20130415
  Transmission Date: 20140414
  Serious: Yes (Other)
  Sender: FDA-Public Use
  Company Number: IT-TEVA-397918ISR

PATIENT
  Age: 57 Year
  Sex: Female

DRUGS (1)
  1. KETOPROFENE [Suspect]
     Indication: INFLUENZA
     Route: 048
     Dates: start: 20121129, end: 20121201

REACTIONS (2)
  - Gastritis erosive [Unknown]
  - Erosive duodenitis [Unknown]
